FAERS Safety Report 11669201 (Version 2)
Quarter: 2015Q4

REPORT INFORMATION
  Report Type: Spontaneous
  Country: US (occurrence: US)
  Receive Date: 20151027
  Receipt Date: 20151110
  Transmission Date: 20160304
  Serious: No
  Sender: FDA-Public Use
  Company Number: US-ELI_LILLY_AND_COMPANY-US201003001336

PATIENT
  Sex: Female

DRUGS (3)
  1. FORTEO [Suspect]
     Active Substance: TERIPARATIDE
     Dosage: 20 UG, QD
  2. FORTEO [Suspect]
     Active Substance: TERIPARATIDE
     Dosage: 20 UG, DAILY (1/D)
     Dates: start: 2010
  3. FORTEO [Suspect]
     Active Substance: TERIPARATIDE
     Indication: OSTEOPOROSIS
     Dosage: 20 UG, DAILY (1/D)
     Dates: start: 20091216

REACTIONS (12)
  - Muscle spasms [Not Recovered/Not Resolved]
  - Dizziness postural [Unknown]
  - Musculoskeletal discomfort [Not Recovered/Not Resolved]
  - Sneezing [Unknown]
  - Ear pain [Unknown]
  - Musculoskeletal stiffness [Unknown]
  - Cough [Unknown]
  - Diarrhoea [Recovered/Resolved]
  - Limb discomfort [Unknown]
  - Dysstasia [Unknown]
  - Dry skin [Not Recovered/Not Resolved]
  - Vomiting [Recovered/Resolved]
